FAERS Safety Report 24568736 (Version 3)
Quarter: 2025Q1

REPORT INFORMATION
  Report Type: Spontaneous
  Country: DE (occurrence: DE)
  Receive Date: 20241031
  Receipt Date: 20250107
  Transmission Date: 20250409
  Serious: Yes (Life-Threatening, Other)
  Sender: COVIS PHARMA GMBH
  Company Number: DE-AstraZeneca-2020SE48481

PATIENT
  Age: 82 Year
  Sex: Male

DRUGS (2)
  1. ALVESCO [Suspect]
     Active Substance: CICLESONIDE
     Indication: Respiratory disorder
     Route: 055
     Dates: start: 2009
  2. ALVESCO [Suspect]
     Active Substance: CICLESONIDE
     Indication: Asthma

REACTIONS (12)
  - Pneumonia [Unknown]
  - Bacterial infection [Unknown]
  - Pneumonia bacterial [Unknown]
  - Pneumonia [Unknown]
  - Increased bronchial secretion [Unknown]
  - Pulmonary embolism [Unknown]
  - Pneumonia [Unknown]
  - Pleurisy [Unknown]
  - Thrombosis [Unknown]
  - Emphysema [Unknown]
  - Pulmonary infarction [Unknown]
  - Drug ineffective [Unknown]

NARRATIVE: CASE EVENT DATE: 20111201
